FAERS Safety Report 8144644-2 (Version None)
Quarter: 2012Q1

REPORT INFORMATION
  Report Type: 
  Country: None (occurrence: None)
  Receive Date: 20120217
  Receipt Date: 20120202
  Transmission Date: 20120608
  Serious: Yes (Other)
  Sender: FDA-Public Use
  Company Number: HU-ROCHE-1040437

PATIENT
  Sex: Female

DRUGS (1)
  1. INTERFERON ALFA [Suspect]
     Indication: CHRONIC MYELOID LEUKAEMIA
     Route: 064

REACTIONS (1)
  - CARDIAC SEPTAL DEFECT [None]
